FAERS Safety Report 18629898 (Version 2)
Quarter: 2021Q2

REPORT INFORMATION
  Report Type: Spontaneous
  Country: US (occurrence: US)
  Receive Date: 20201217
  Receipt Date: 20210512
  Transmission Date: 20210717
  Serious: No
  Sender: FDA-Public Use
  Company Number: US-PFIZER INC-2020497201

PATIENT
  Age: 75 Year
  Sex: Female

DRUGS (1)
  1. LYRICA [Suspect]
     Active Substance: PREGABALIN
     Dosage: 600 MG(4 OF THE LYRICA 150 TO GET THE 600 MG)

REACTIONS (3)
  - Anxiety [Unknown]
  - Pain in extremity [Unknown]
  - Product dose omission issue [Unknown]
